FAERS Safety Report 24571777 (Version 1)
Quarter: 2024Q4

REPORT INFORMATION
  Report Type: Spontaneous
  Country: JP (occurrence: JP)
  Receive Date: 20241101
  Receipt Date: 20241101
  Transmission Date: 20250115
  Serious: Yes (Other)
  Sender: CHEPLAPHARM
  Company Number: JP-ELI_LILLY_AND_COMPANY-JP202410014215

PATIENT
  Age: 38 Year
  Sex: Female

DRUGS (2)
  1. OLANZAPINE [Suspect]
     Active Substance: OLANZAPINE
     Indication: Product used for unknown indication
     Dosage: STRENGTH:10MG?DAILY DOSE: 10 MILLIGRAM
     Route: 048
     Dates: start: 200506
  2. OLANZAPINE [Suspect]
     Active Substance: OLANZAPINE
     Indication: Product used for unknown indication
     Dosage: STRENGTH:5MG?DAILY DOSE: 5 MILLIGRAM
     Route: 048
     Dates: start: 200507

REACTIONS (2)
  - Dystonia [Unknown]
  - Musculoskeletal disorder [Unknown]
